FAERS Safety Report 7542189-1 (Version None)
Quarter: 2011Q2

REPORT INFORMATION
  Report Type: 
  Country: None (occurrence: None)
  Receive Date: 20110613
  Receipt Date: 20110609
  Transmission Date: 20111010
  Serious: Yes (Life-Threatening)
  Sender: FDA-Public Use
  Company Number: CA-ASTRAZENECA-2011SE35238

PATIENT
  Age: 86 Year
  Sex: Male

DRUGS (9)
  1. FLOMAX [Concomitant]
  2. NEXIUM [Suspect]
     Route: 048
     Dates: start: 20090101
  3. LASIX [Concomitant]
  4. POTASSIUM CHLORIDE [Concomitant]
  5. METOPROLOL SUCCINATE [Concomitant]
  6. NORVASC [Concomitant]
  7. ATACAND [Concomitant]
     Route: 048
  8. ASPIRIN [Concomitant]
  9. IMDUR [Concomitant]

REACTIONS (2)
  - SUICIDAL IDEATION [None]
  - SUICIDE ATTEMPT [None]
